FAERS Safety Report 5876516-8 (Version None)
Quarter: 2008Q3

REPORT INFORMATION
  Report Type: 
  Country: None (occurrence: None)
  Receive Date: 20080910
  Receipt Date: 20080903
  Transmission Date: 20090109
  Serious: Yes (Hospitalization)
  Sender: FDA-Public Use
  Company Number: B0536312A

PATIENT
  Age: 30 Year
  Sex: Female

DRUGS (8)
  1. VALTREX [Suspect]
     Indication: HERPES SIMPLEX
     Dosage: 500MG PER DAY
     Route: 048
     Dates: start: 20080515, end: 20080515
  2. PENTAMIDINE [Concomitant]
     Indication: DRUG USE FOR UNKNOWN INDICATION
     Route: 055
     Dates: start: 20080513
  3. IPRATROPIUM BROMIDE [Concomitant]
     Dosage: 1.5MG PER DAY
     Route: 055
     Dates: start: 20080515, end: 20080516
  4. ALBUTEROL SPIROS [Concomitant]
     Route: 055
     Dates: start: 20080515, end: 20080516
  5. TAVANIC [Concomitant]
     Dosage: 500MG PER DAY
     Dates: start: 20080515, end: 20080522
  6. SUSTIVA [Concomitant]
     Indication: HIV INFECTION
     Dosage: 600MG PER DAY
     Route: 048
     Dates: start: 20080513
  7. TRUVADA [Concomitant]
     Indication: HIV INFECTION
     Route: 048
     Dates: start: 20080513
  8. COTRIMOXAZOLE [Concomitant]
     Indication: PNEUMOCYSTIS JIROVECI PNEUMONIA
     Route: 065
     Dates: start: 20080502, end: 20080508

REACTIONS (3)
  - ERYTHEMA [None]
  - PYREXIA [None]
  - RASH [None]
